FAERS Safety Report 10847365 (Version 1)
Quarter: 2015Q1

REPORT INFORMATION
  Report Type: Spontaneous
  Country: US (occurrence: US)
  Receive Date: 20150220
  Receipt Date: 20150220
  Transmission Date: 20150721
  Serious: No
  Sender: FDA-Public Use
  Company Number: US-PFIZER INC-2015062280

PATIENT
  Sex: Female
  Weight: 66 kg

DRUGS (1)
  1. CELECOXIB. [Suspect]
     Active Substance: CELECOXIB
     Indication: ARTHRITIS
     Dosage: 200 MG, 1X/DAY
     Dates: start: 201501, end: 201501

REACTIONS (6)
  - Pruritus generalised [Recovered/Resolved]
  - Swelling face [Recovered/Resolved]
  - Tongue blistering [Recovered/Resolved]
  - Paraesthesia oral [Recovered/Resolved]
  - Rash macular [Recovered/Resolved]
  - Rash papular [Recovered/Resolved]

NARRATIVE: CASE EVENT DATE: 201501
